FAERS Safety Report 5527391-2 (Version None)
Quarter: 2007Q4

REPORT INFORMATION
  Report Type: 
  Country: None (occurrence: None)
  Receive Date: 20071123
  Receipt Date: 20071115
  Transmission Date: 20080405
  Serious: Yes (Hospitalization, Other)
  Sender: FDA-Public Use
  Company Number: 163-21880-07110920

PATIENT
  Age: 59 Year
  Sex: Female
  Weight: 65.5 kg

DRUGS (1)
  1. REVLIMID [Suspect]
     Indication: MULTIPLE MYELOMA
     Dosage: 15 MG, Q DAY, ORAL
     Route: 048
     Dates: start: 20070919

REACTIONS (6)
  - HYPOTENSION [None]
  - NEUTROPENIA [None]
  - PLATELET COUNT ABNORMAL [None]
  - RENAL FAILURE ACUTE [None]
  - RHABDOMYOLYSIS [None]
  - WHITE BLOOD CELL COUNT DECREASED [None]
